FAERS Safety Report 5648079-3 (Version None)
Quarter: 2008Q1

REPORT INFORMATION
  Report Type: 
  Country: None (occurrence: None)
  Receive Date: 20080229
  Receipt Date: 20080229
  Transmission Date: 20080703
  Serious: Yes (Hospitalization)
  Sender: FDA-Public Use
  Company Number: None

PATIENT
  Age: 58 Year
  Sex: Male
  Weight: 114.2 kg

DRUGS (1)
  1. TRAMADOL HCL [Suspect]
     Indication: PAIN
     Dosage: 50MG QID PO
     Route: 048
     Dates: start: 20070326

REACTIONS (3)
  - INCORRECT DOSE ADMINISTERED [None]
  - LETHARGY [None]
  - TACHYCARDIA [None]
